FAERS Safety Report 18917507 (Version 2)
Quarter: 2021Q1

REPORT INFORMATION
  Report Type: Spontaneous
  Country: TH (occurrence: TH)
  Receive Date: 20210219
  Receipt Date: 20210226
  Transmission Date: 20210420
  Serious: Yes (Life-Threatening, Other)
  Sender: FDA-Public Use
  Company Number: TH-SA-2021SA056542

PATIENT
  Age: 78 Year
  Sex: Male

DRUGS (11)
  1. SODIUM BICARBONATE. [Concomitant]
     Active Substance: SODIUM BICARBONATE
     Indication: HYPERAMMONAEMIA
  2. OXALIPLATIN. [Suspect]
     Active Substance: OXALIPLATIN
     Dosage: 60 UNK, QCY
  3. FLUOROURACIL 5 FU [Suspect]
     Active Substance: FLUOROURACIL
     Dosage: FULL DOSE
  4. LEUCOVORIN [FOLINIC ACID] [Suspect]
     Active Substance: LEUCOVORIN
     Indication: COLORECTAL CANCER RECURRENT
     Dosage: 400 MG/M2, QCY
  5. FLUOROURACIL 5 FU [Suspect]
     Active Substance: FLUOROURACIL
     Dosage: CONTINUOUS INTRAVENOUS INFUSION
     Route: 042
  6. FLUOROURACIL 5 FU [Suspect]
     Active Substance: FLUOROURACIL
     Dosage: WITH REDUCING DOSE OF 5?FU (BOLUS400/CONTINUOUS 600 MG/M2)
     Route: 040
  7. SODIUM BICARBONATE. [Concomitant]
     Active Substance: SODIUM BICARBONATE
     Indication: TOXIC ENCEPHALOPATHY
  8. SODIUM BICARBONATE. [Concomitant]
     Active Substance: SODIUM BICARBONATE
     Indication: LACTIC ACIDOSIS
  9. OXALIPLATIN. [Suspect]
     Active Substance: OXALIPLATIN
     Indication: COLORECTAL CANCER RECURRENT
     Dosage: 75 MG/M2, QCY
  10. FLUOROURACIL 5 FU [Suspect]
     Active Substance: FLUOROURACIL
     Indication: COLORECTAL CANCER RECURRENT
     Dosage: 400 MG/M2, QCY
     Route: 040
  11. SODIUM BICARBONATE. [Concomitant]
     Active Substance: SODIUM BICARBONATE
     Indication: ACUTE KIDNEY INJURY

REACTIONS (8)
  - Lactic acidosis [Recovering/Resolving]
  - Dysarthria [Recovering/Resolving]
  - Cognitive disorder [Recovering/Resolving]
  - Toxic encephalopathy [Recovering/Resolving]
  - Hyperammonaemia [Recovering/Resolving]
  - Agitation [Recovering/Resolving]
  - Blood creatinine increased [Recovering/Resolving]
  - Acute kidney injury [Recovering/Resolving]
